FAERS Safety Report 16678098 (Version 1)
Quarter: 2019Q3

REPORT INFORMATION
  Report Type: Other
  Country: US (occurrence: US)
  Receive Date: 20190807
  Receipt Date: 20190807
  Transmission Date: 20191004
  Serious: No
  Sender: FDA-Public Use
  Company Number: US-LUPIN PHARMACEUTICALS INC.-2018-08592

PATIENT
  Sex: Female

DRUGS (1)
  1. LEVETIRACETAM TABLETS USP, 500 MG [Suspect]
     Active Substance: LEVETIRACETAM
     Indication: SEIZURE
     Dosage: UNK (YELLOW PILL)
     Route: 065

REACTIONS (6)
  - Dizziness [Unknown]
  - Insomnia [Unknown]
  - Dental plaque [Unknown]
  - Neck pain [Unknown]
  - Headache [Unknown]
  - Paraesthesia oral [Unknown]
